FAERS Safety Report 6175525-1 (Version None)
Quarter: 2009Q2

REPORT INFORMATION
  Report Type: 
  Country: None (occurrence: None)
  Receive Date: 20090429
  Receipt Date: 20090421
  Transmission Date: 20091009
  Serious: Yes (Death, Other)
  Sender: FDA-Public Use
  Company Number: 2009US001211

PATIENT

DRUGS (1)
  1. PROGRAF [Suspect]
     Indication: RENAL TRANSPLANT
     Dosage: ORAL
     Route: 048

REACTIONS (1)
  - KIDNEY TRANSPLANT REJECTION [None]
